FAERS Safety Report 24883084 (Version 1)
Quarter: 2025Q1

REPORT INFORMATION
  Report Type: Spontaneous
  Country: DE (occurrence: DE)
  Receive Date: 20250124
  Receipt Date: 20250124
  Transmission Date: 20250409
  Serious: Yes (Life-Threatening, Hospitalization, Other)
  Sender: SANDOZ
  Company Number: DE-SANDOZ-SDZ2025DE004450

PATIENT
  Age: 51 Year
  Sex: Female

DRUGS (2)
  1. CLINDAMYCIN [Suspect]
     Active Substance: CLINDAMYCIN
     Indication: Dental operation
     Dosage: 1 DF, QD
     Route: 065
     Dates: start: 20241217
  2. LEVOTHYROXINE [Concomitant]
     Active Substance: LEVOTHYROXINE
     Indication: Hypothyroidism
     Route: 065

REACTIONS (5)
  - Necrotising oesophagitis [Recovered/Resolved]
  - Foreign body in throat [Recovered/Resolved]
  - Chest pain [Recovered/Resolved]
  - Sensation of foreign body [Recovered/Resolved]
  - Product use issue [Recovered/Resolved]

NARRATIVE: CASE EVENT DATE: 20241217
